FAERS Safety Report 4551667-9 (Version None)
Quarter: 2005Q1

REPORT INFORMATION
  Report Type: 
  Country: None (occurrence: None)
  Receive Date: 20050112
  Receipt Date: 20041227
  Transmission Date: 20050727
  Serious: Yes (Death, Hospitalization)
  Sender: FDA-Public Use
  Company Number: 2004BI002228

PATIENT
  Age: 60 Year
  Sex: Female
  Weight: 61.2356 kg

DRUGS (3)
  1. AVONEX [Suspect]
     Indication: MULTIPLE SCLEROSIS
     Dosage: 30 UG; QW; IM
     Route: 030
     Dates: start: 19970101, end: 20030101
  2. AVONEX [Suspect]
     Indication: MULTIPLE SCLEROSIS
     Dosage: 30 UG; QW; IM
     Route: 030
     Dates: start: 20030101, end: 20030101
  3. MULTIPLE MEDICATIONS (NOS) [Concomitant]

REACTIONS (4)
  - IMMUNE SYSTEM DISORDER [None]
  - LUNG INFECTION PSEUDOMONAL [None]
  - PSEUDOMONAS INFECTION [None]
  - SINUSITIS BACTERIAL [None]
